FAERS Safety Report 8926112 (Version 2)
Quarter: 2013Q3

REPORT INFORMATION
  Report Type: Spontaneous
  Country: JP (occurrence: JP)
  Receive Date: 20121127
  Receipt Date: 20130815
  Transmission Date: 20140515
  Serious: Yes (Death)
  Sender: FDA-Public Use
  Company Number: JP-009507513-1211JPN009303

PATIENT
  Age: 10 Year
  Sex: Female

DRUGS (1)
  1. TEMODAL [Suspect]
     Indication: BRAIN STEM GLIOMA
     Dosage: 75 MG/M2, QD
     Route: 048

REACTIONS (1)
  - Intracranial tumour haemorrhage [Fatal]
